FAERS Safety Report 20768899 (Version 1)
Quarter: 2022Q2

REPORT INFORMATION
  Report Type: Spontaneous
  Country: US (occurrence: None)
  Receive Date: 20220428
  Receipt Date: 20220428
  Transmission Date: 20220720
  Serious: Yes (Other)
  Sender: FDA-Public Use
  Company Number: None

PATIENT
  Age: 90 Year
  Sex: Male

DRUGS (1)
  1. REVLIMID [Suspect]
     Active Substance: LENALIDOMIDE
     Indication: Methylmalonic aciduria
     Dosage: OTHER FREQUENCY : DAILY X 14 DAYS;?
     Route: 048
     Dates: start: 20211112, end: 20220427

REACTIONS (2)
  - Neutrophil count decreased [None]
  - Therapy interrupted [None]

NARRATIVE: CASE EVENT DATE: 20220427
